FAERS Safety Report 4791965-7 (Version None)
Quarter: 2005Q4

REPORT INFORMATION
  Report Type: 
  Country: None (occurrence: None)
  Receive Date: 20051005
  Receipt Date: 20050915
  Transmission Date: 20060501
  Serious: Yes (Other)
  Sender: FDA-Public Use
  Company Number: EWC050945934

PATIENT
  Sex: Male

DRUGS (1)
  1. FORTEO [Suspect]
     Dates: start: 20040616

REACTIONS (1)
  - PROSTATE CANCER [None]
